FAERS Safety Report 9237193 (Version 1)
Quarter: 2013Q2

REPORT INFORMATION
  Report Type: Spontaneous
  Country: US (occurrence: US)
  Receive Date: 20130417
  Receipt Date: 20130417
  Transmission Date: 20140414
  Serious: No
  Sender: FDA-Public Use
  Company Number: US-PFIZER INC-2013118419

PATIENT
  Age: 58 Year
  Sex: Female

DRUGS (9)
  1. CALAN SR [Suspect]
     Indication: ESSENTIAL HYPERTENSION
     Dosage: 180 MG, 1X/DAY
     Route: 048
  2. TRAMADOL HYDROCHLORIDE [Concomitant]
     Dosage: 50 MG, AS NEEDED (EVERY 8 HOURS)
  3. NASONEX [Concomitant]
     Indication: RHINITIS ALLERGIC
     Dosage: 2 DF, 1X/DAY
     Route: 045
  4. SINGULAIR [Concomitant]
     Indication: RHINITIS ALLERGIC
     Dosage: 10 MG, 1X/DAY (IN THE EVENING)
     Route: 048
  5. LISINOPRIL [Concomitant]
     Indication: ESSENTIAL HYPERTENSION
     Dosage: 40 MG, 1X/DAY
     Route: 048
  6. HYDROCHLOROTHIAZIDE [Concomitant]
     Indication: ESSENTIAL HYPERTENSION
     Dosage: 12.5 MG, 1X/DAY
     Route: 048
  7. SYMBICORT [Concomitant]
     Indication: ASTHMA
     Dosage: 2 DF, 2X/DAY
  8. ALBUTEROL SULFATE [Concomitant]
     Indication: ASTHMA
     Dosage: 2 DF, EVERY 4 HRS
  9. METFORMIN HYDROCHLORIDE [Concomitant]
     Dosage: 500 MG, 2X/DAY

REACTIONS (1)
  - Cough [Unknown]
